FAERS Safety Report 8624161-3 (Version None)
Quarter: 2012Q3

REPORT INFORMATION
  Report Type: 
  Country: None (occurrence: None)
  Receive Date: 20120827
  Receipt Date: 20120823
  Transmission Date: 20120928
  Serious: No
  Sender: FDA-Public Use
  Company Number: US-TEVA-354335USA

PATIENT
  Sex: Female
  Weight: 61.29 kg

DRUGS (2)
  1. ZOLOFT [Concomitant]
     Indication: DEPRESSION
  2. PLAN B ONE-STEP [Suspect]
     Indication: POST COITAL CONTRACEPTION
     Dosage: 1.5 MILLIGRAM DAILY;
     Route: 048
     Dates: start: 20120730, end: 20120730

REACTIONS (1)
  - MENSTRUATION IRREGULAR [None]
